FAERS Safety Report 19284429 (Version 1)
Quarter: 2021Q2

REPORT INFORMATION
  Report Type: Spontaneous
  Country: US (occurrence: US)
  Receive Date: 20210521
  Receipt Date: 20210521
  Transmission Date: 20210717
  Serious: No
  Sender: FDA-Public Use
  Company Number: US-CELGENEUS-USA-20210502130

PATIENT
  Sex: Male

DRUGS (6)
  1. POMALYST [Suspect]
     Active Substance: POMALIDOMIDE
     Dosage: 15MG?10MG
     Route: 048
     Dates: start: 201009
  2. POMALYST [Suspect]
     Active Substance: POMALIDOMIDE
     Indication: PLASMA CELL MYELOMA
     Dosage: 10 MILLIGRAM
     Route: 048
     Dates: start: 201006
  3. POMALYST [Suspect]
     Active Substance: POMALIDOMIDE
     Dosage: 5 MILLIGRAM
     Route: 048
     Dates: start: 201107
  4. POMALYST [Suspect]
     Active Substance: POMALIDOMIDE
     Dosage: 4MG?3MG
     Route: 048
     Dates: start: 201712
  5. POMALYST [Suspect]
     Active Substance: POMALIDOMIDE
     Dosage: 2 MILLIGRAM
     Route: 048
     Dates: start: 202005
  6. POMALYST [Suspect]
     Active Substance: POMALIDOMIDE
     Dosage: 10MG?4MG
     Route: 048
     Dates: start: 201707

REACTIONS (1)
  - Sinusitis [Unknown]
